FAERS Safety Report 9745091 (Version 1)
Quarter: 2013Q4

REPORT INFORMATION
  Report Type: Spontaneous
  Country: US (occurrence: US)
  Receive Date: 20131211
  Receipt Date: 20131211
  Transmission Date: 20140711
  Serious: No
  Sender: FDA-Public Use
  Company Number: US-009507513-1312USA003004

PATIENT
  Age: 15 Year
  Sex: Male

DRUGS (2)
  1. NASONEX [Suspect]
     Indication: ALLERGIC SINUSITIS
     Dosage: 2 SPRAYS EACH NOSTRIL DAILY
     Route: 045
     Dates: start: 201207, end: 201207
  2. LEVOCETIRIZINE [Concomitant]
     Dosage: UNK

REACTIONS (3)
  - Nasal congestion [Recovering/Resolving]
  - Headache [Recovering/Resolving]
  - Drug ineffective [Unknown]
